FAERS Safety Report 21250065 (Version 2)
Quarter: 2022Q3

REPORT INFORMATION
  Report Type: Spontaneous
  Country: DE (occurrence: DE)
  Receive Date: 20220824
  Receipt Date: 20220901
  Transmission Date: 20221026
  Serious: Yes (Other)
  Sender: FDA-Public Use
  Company Number: DE-ANIPHARMA-2022-DE-000115

PATIENT
  Age: 84 Year
  Sex: Female

DRUGS (7)
  1. CANDESARTAN CILEXETIL [Suspect]
     Active Substance: CANDESARTAN CILEXETIL
     Indication: Product used for unknown indication
     Dosage: 16 MG DAILY
     Route: 048
  2. COVID-19 VACCINE NOS [Suspect]
     Active Substance: COVID-19 VACCINE NOS
     Dosage: 3. DOSE
     Route: 065
     Dates: start: 202111, end: 202111
  3. HYDROCHLOROTHIAZIDE\METOPROLOL SUCCINATE [Suspect]
     Active Substance: HYDROCHLOROTHIAZIDE\METOPROLOL SUCCINATE
     Dosage: 190 MG DAILY
     Route: 048
  4. AMLODIPINE BESYLATE [Suspect]
     Active Substance: AMLODIPINE BESYLATE
     Dosage: 5 MG DAILY/ 10 MG DAILY
     Route: 048
  5. METAMIZOLE [Suspect]
     Active Substance: METAMIZOLE
     Dosage: WHEN NEEDED
     Route: 048
  6. ELIQUIS [Suspect]
     Active Substance: APIXABAN
     Dosage: 10 MG DAILY
     Route: 048
  7. METOPROLOL [Suspect]
     Active Substance: METOPROLOL
     Dosage: 190 MG DAILY
     Route: 048

REACTIONS (6)
  - Arrhythmia [Not Recovered/Not Resolved]
  - Back pain [Not Recovered/Not Resolved]
  - Nausea [Not Recovered/Not Resolved]
  - Abdominal pain [Not Recovered/Not Resolved]
  - Splenic cyst [Unknown]
  - Pancreatic cyst [Unknown]
